FAERS Safety Report 11024819 (Version 2)
Quarter: 2015Q2

REPORT INFORMATION
  Report Type: Spontaneous
  Country: IT (occurrence: None)
  Receive Date: 20150410
  Receipt Date: 20150619
  Transmission Date: 20150821
  Serious: No
  Sender: FDA-Public Use
  Company Number: 1503ITA007333

PATIENT
  Age: 81 Year
  Sex: Male
  Weight: 85 kg

DRUGS (7)
  1. ISOCEF (CEFTIBUTEN) CAPSULE, 400MG [Suspect]
     Active Substance: CEFTIBUTEN
     Indication: DYSPHAGIA
     Route: 048
     Dates: start: 20141228, end: 20141231
  2. LEVEMIR [Concomitant]
     Active Substance: INSULIN DETEMIR
  3. NOVOMIX (INSULIN ASPART, INSULIN ASPART PROTAMINE) [Concomitant]
  4. LASIX [Concomitant]
     Active Substance: FUROSEMIDE
  5. CARDIRENE (ASPIRIN LYSINE) [Concomitant]
  6. ISOCEF (CEFTIBUTEN) CAPSULE, 400MG [Suspect]
     Active Substance: CEFTIBUTEN
     Indication: TRACHEITIS
     Route: 048
     Dates: start: 20141228, end: 20141231
  7. GLURENOR (GLIQUIDONE) [Concomitant]

REACTIONS (2)
  - Urticaria [None]
  - Pruritus generalised [None]

NARRATIVE: CASE EVENT DATE: 20150102
